FAERS Safety Report 5272396-2 (Version None)
Quarter: 2007Q1

REPORT INFORMATION
  Report Type: 
  Country: None (occurrence: None)
  Receive Date: 20070322
  Receipt Date: 20070309
  Transmission Date: 20070707
  Serious: Yes (Hospitalization, Other)
  Sender: FDA-Public Use
  Company Number: PHEH2007US02488

PATIENT
  Age: 53 Year
  Sex: Female

DRUGS (6)
  1. LOTREL [Suspect]
     Indication: HYPERTENSION
     Dosage: 10/40 MG, QD
     Route: 048
     Dates: start: 20070219, end: 20070221
  2. CLARINEX /USA/ [Concomitant]
     Dosage: 5 MG, QD
     Route: 048
  3. HYDROCHLOROTHIAZIDE [Concomitant]
     Dosage: 25 MG, QD
     Route: 048
  4. TENORMIN [Concomitant]
     Dosage: 100 MG, QD
     Route: 048
  5. ACTOS /USA/ [Concomitant]
     Dosage: 30 UNK, QD
     Route: 048
  6. AMARYL [Concomitant]
     Dosage: 4 UNK, QD
     Route: 048

REACTIONS (5)
  - ANGIOEDEMA [None]
  - HEADACHE [None]
  - LIP SWELLING [None]
  - SWELLING FACE [None]
  - VISION BLURRED [None]
